FAERS Safety Report 9377181 (Version 2)
Quarter: 2013Q3

REPORT INFORMATION
  Report Type: Spontaneous
  Country: US (occurrence: US)
  Receive Date: 20130701
  Receipt Date: 20130710
  Transmission Date: 20140515
  Serious: No
  Sender: FDA-Public Use
  Company Number: US-NOVOPROD-381577

PATIENT
  Sex: Female

DRUGS (2)
  1. NOVOLOG MIX 70/30 [Suspect]
     Indication: DIABETES MELLITUS
     Dosage: UNKNOWN
     Route: 058
     Dates: end: 201305
  2. NOVOLOG [Concomitant]
     Indication: DIABETES MELLITUS
     Dosage: UNKNOWN
     Route: 058

REACTIONS (5)
  - Fluid retention [Recovered/Resolved]
  - Heart rate increased [Recovered/Resolved]
  - Vision blurred [Recovered/Resolved]
  - Tremor [Recovered/Resolved]
  - Blood glucose abnormal [Recovered/Resolved]
